FAERS Safety Report 8109659-9 (Version None)
Quarter: 2012Q1

REPORT INFORMATION
  Report Type: 
  Country: None (occurrence: None)
  Receive Date: 20120202
  Receipt Date: 20120117
  Transmission Date: 20120608
  Serious: No
  Sender: FDA-Public Use
  Company Number: US-AMGEN-USASP2012000208

PATIENT
  Age: 19 Year
  Sex: Female
  Weight: 82.993 kg

DRUGS (6)
  1. FOLIC ACID [Concomitant]
     Dosage: UNK
  2. ENBREL [Suspect]
     Indication: JUVENILE ARTHRITIS
     Dosage: 50 MG, QWK
     Route: 058
     Dates: start: 20111011
  3. HYDROCODONE BITARTRATE [Concomitant]
     Dosage: 5/325, PRN
     Route: 048
  4. PREDNISONE TAB [Concomitant]
     Dosage: 7.5 MG, PER DAY
     Route: 048
  5. SIMPONI [Concomitant]
     Dosage: UNK
  6. METHOTREXATE [Concomitant]
     Dosage: 7.5 MG, PER WEEK
     Route: 048

REACTIONS (2)
  - INFLUENZA [None]
  - UPPER RESPIRATORY TRACT INFECTION [None]
